FAERS Safety Report 6080040-X (Version None)
Quarter: 2009Q1

REPORT INFORMATION
  Report Type: 
  Country: None (occurrence: None)
  Receive Date: 20090217
  Receipt Date: 20090206
  Transmission Date: 20090719
  Serious: Yes (Death, Other)
  Sender: FDA-Public Use
  Company Number: US-TYCO HEALTHCARE/MALLINCKRODT-T200900228

PATIENT
  Age: 32 Year
  Sex: Male

DRUGS (2)
  1. OXYCODONE [Suspect]
     Indication: PAIN
  2. ANALGESICS [Suspect]
     Indication: PAIN

REACTIONS (1)
  - DRUG INTERACTION [None]
